FAERS Safety Report 4870622-2 (Version None)
Quarter: 2005Q4

REPORT INFORMATION
  Report Type: 
  Country: None (occurrence: None)
  Receive Date: 20051223
  Receipt Date: 20051212
  Transmission Date: 20060501
  Serious: Yes (Death)
  Sender: FDA-Public Use
  Company Number: 2005S1000253

PATIENT
  Age: 65 Year
  Sex: Male
  Weight: 162.84 kg

DRUGS (23)
  1. CUBICIN [Suspect]
     Indication: CELLULITIS
     Dosage: 4 MG/KG; Q24H; IV
     Route: 042
     Dates: start: 20040714, end: 20050717
  2. CUBICIN [Suspect]
     Indication: PANNICULITIS
     Dosage: 4 MG/KG; Q24H; IV
     Route: 042
     Dates: start: 20040714, end: 20050717
  3. MAXIPIME [Concomitant]
  4. CLINDAMYCIN [Concomitant]
  5. HEPARIN [Concomitant]
  6. PLAVIX [Concomitant]
  7. AMLODIPINE [Concomitant]
  8. LISINOPRIL [Concomitant]
  9. LOPRESSOR [Concomitant]
  10. NIASPAN [Concomitant]
  11. LOPID [Concomitant]
  12. FUROSEMIDE [Concomitant]
  13. RELAFEN [Concomitant]
  14. LORTAB [Concomitant]
  15. INSULIN [Concomitant]
  16. XOPENEX [Concomitant]
  17. DYAZIDE [Concomitant]
  18. PIOGLITAZONE HCL [Concomitant]
  19. METFORMIN [Concomitant]
  20. MOBIC [Concomitant]
  21. LOTREL [Concomitant]
  22. CENTRUM [Concomitant]
  23. FORTAZ [Concomitant]

REACTIONS (14)
  - BLOOD CREATINE PHOSPHOKINASE MB INCREASED [None]
  - CORONARY ARTERY STENOSIS [None]
  - HAEMODIALYSIS [None]
  - LETHARGY [None]
  - METABOLIC ACIDOSIS [None]
  - MITRAL VALVE INCOMPETENCE [None]
  - MULTI-ORGAN FAILURE [None]
  - RENAL FAILURE ACUTE [None]
  - RESPIRATORY FAILURE [None]
  - RHABDOMYOLYSIS [None]
  - SEPSIS [None]
  - THERAPY NON-RESPONDER [None]
  - TROPONIN INCREASED [None]
  - VENTRICULAR DYSFUNCTION [None]
